FAERS Safety Report 24026388 (Version 6)
Quarter: 2024Q3

REPORT INFORMATION
  Report Type: Report from Study
  Country: CN (occurrence: CN)
  Receive Date: 20240628
  Receipt Date: 20240710
  Transmission Date: 20241016
  Serious: No
  Sender: ROCHE
  Company Number: CN-ROCHE-3101880

PATIENT
  Age: 64 Year
  Sex: Male
  Weight: 69.6 kg

DRUGS (8)
  1. ALECTINIB [Suspect]
     Active Substance: ALECTINIB
     Indication: Non-small cell lung cancer metastatic
     Route: 048
     Dates: start: 20211022
  2. LIVER [Concomitant]
     Active Substance: MAMMAL LIVER
     Route: 048
     Dates: start: 20220615
  3. GANXI [Concomitant]
     Dosage: FREQUENCY TEXT:QID
     Route: 048
     Dates: start: 20220615, end: 202207
  4. BUPLEURUM ROOT [Concomitant]
     Indication: COVID-19
     Dosage: FREQUENCY TEXT:OTHER
     Route: 048
     Dates: start: 20221220, end: 20221220
  5. PETROLEUM JELLY [Concomitant]
     Active Substance: PETROLATUM
     Dates: start: 202304
  6. CELECOXIB [Concomitant]
     Active Substance: CELECOXIB
     Route: 048
     Dates: start: 20231111, end: 20231121
  7. LORATADINE [Concomitant]
     Active Substance: LORATADINE
     Route: 048
     Dates: start: 20230715, end: 20230717
  8. DESLORATADINE [Concomitant]
     Active Substance: DESLORATADINE
     Route: 048
     Dates: start: 20230718, end: 20230729

REACTIONS (5)
  - Constipation [Recovered/Resolved]
  - Blood creatine phosphokinase increased [Not Recovered/Not Resolved]
  - Dermatitis allergic [Recovered/Resolved]
  - Blood lactate dehydrogenase increased [Not Recovered/Not Resolved]
  - Dermatitis allergic [Recovered/Resolved]

NARRATIVE: CASE EVENT DATE: 20220509
